FAERS Safety Report 9049321 (Version 5)
Quarter: 2013Q4

REPORT INFORMATION
  Report Type: Report from Study
  Country: BR (occurrence: BR)
  Receive Date: 20130205
  Receipt Date: 20131209
  Transmission Date: 20140711
  Serious: Yes (Hospitalization, Other)
  Sender: FDA-Public Use
  Company Number: BR-ROCHE-731739

PATIENT
  Age: 73 Year
  Sex: Female
  Weight: 68 kg

DRUGS (18)
  1. MABTHERA [Suspect]
     Indication: RHEUMATOID ARTHRITIS
     Dosage: FORM: INFUSION, RECEIVED TWO INFUSIONS.
     Route: 042
  2. MABTHERA [Suspect]
     Route: 042
  3. MABTHERA [Suspect]
     Route: 042
  4. MABTHERA [Suspect]
     Dosage: LAST DATE OF INFUSION : 24/FEB/2012
     Route: 042
  5. MABTHERA [Suspect]
     Dosage: LAST DATE OF INFUSION /JUN/2013.
     Route: 042
  6. ACTEMRA [Suspect]
     Indication: RHEUMATOID ARTHRITIS
     Route: 042
     Dates: start: 20131027
  7. ACTEMRA [Suspect]
     Route: 042
     Dates: start: 20131127
  8. CYCLOBENZAPRINE [Suspect]
     Indication: PRODUCT USED FOR UNKNOWN INDICATION
     Route: 065
  9. CELEBRA [Suspect]
     Indication: PRODUCT USED FOR UNKNOWN INDICATION
     Route: 065
  10. FOLIC ACID [Concomitant]
     Route: 065
  11. OLCADIL [Concomitant]
     Route: 065
  12. BENALET [Concomitant]
     Route: 065
  13. DEFLAZACORT [Concomitant]
     Route: 065
  14. DEFLAZACORT [Concomitant]
     Route: 065
  15. DEFLAZACORT [Concomitant]
     Route: 065
  16. SERTRALINE HYDROCHLORIDE [Concomitant]
     Dosage: DRUG NAME REPORTED AS ASSERT
     Route: 065
  17. LABIRIN [Concomitant]
     Dosage: DRUG NAME REPORTED AS LABIRIN (BETAHISTINE HYDROCHLORIDE)
     Route: 065
  18. VITAMIN C [Concomitant]

REACTIONS (38)
  - Depression [Recovered/Resolved]
  - Gastrointestinal infection [Recovering/Resolving]
  - Depression [Recovering/Resolving]
  - Syncope [Recovered/Resolved]
  - Arthritis [Not Recovered/Not Resolved]
  - Asthenia [Unknown]
  - Helicobacter infection [Recovered/Resolved]
  - Abdominal pain upper [Recovered/Resolved]
  - Weight decreased [Recovered/Resolved]
  - Gastrointestinal pain [Recovered/Resolved]
  - Hepatic pain [Unknown]
  - Flatulence [Unknown]
  - Malaise [Recovering/Resolving]
  - Diarrhoea [Recovered/Resolved]
  - Movement disorder [Not Recovered/Not Resolved]
  - Fatigue [Recovered/Resolved]
  - Weight increased [Unknown]
  - Pain [Not Recovered/Not Resolved]
  - Gait disturbance [Not Recovered/Not Resolved]
  - Atelectasis [Unknown]
  - White blood cell count decreased [Unknown]
  - Influenza [Recovering/Resolving]
  - Feeling of despair [Unknown]
  - Pain in extremity [Unknown]
  - Mobility decreased [Unknown]
  - Drug ineffective [Unknown]
  - Blood calcium decreased [Unknown]
  - Pruritus [Recovered/Resolved]
  - Sneezing [Recovered/Resolved]
  - Gastrointestinal infection [Unknown]
  - Nausea [Recovered/Resolved]
  - Gastric infection [Unknown]
  - Hypersensitivity [Recovered/Resolved]
  - Weight decreased [Recovering/Resolving]
  - Gastritis [Recovered/Resolved]
  - Rheumatoid arthritis [Recovered/Resolved]
  - Anal polyp [Recovered/Resolved]
  - Depressed mood [Not Recovered/Not Resolved]
